FAERS Safety Report 9034027 (Version 1)
Quarter: 2013Q1

REPORT INFORMATION
  Report Type: Spontaneous
  Country: US (occurrence: None)
  Receive Date: 20130116
  Receipt Date: 20130116
  Transmission Date: 20140127
  Serious: Yes (Hospitalization)
  Sender: FDA-Public Use
  Company Number: None

PATIENT
  Age: 64 Year
  Sex: Male
  Weight: 141 kg

DRUGS (2)
  1. RECOMBINATE [Suspect]
     Indication: FACTOR VIII DEFICIENCY
     Dosage: 3104 UNITS  QOD  IV
     Route: 042
     Dates: start: 20121117
  2. RECOMBINATE [Suspect]

REACTIONS (5)
  - Flushing [None]
  - Dyspnoea [None]
  - Vision blurred [None]
  - Dizziness [None]
  - Hyperhidrosis [None]
